FAERS Safety Report 10162466 (Version 1)
Quarter: 2014Q2

REPORT INFORMATION
  Report Type: Spontaneous
  Country: CA (occurrence: CA)
  Receive Date: 20140509
  Receipt Date: 20140509
  Transmission Date: 20141212
  Serious: Yes (Hospitalization, Other)
  Sender: FDA-Public Use
  Company Number: CA-WATSON-2014-09458

PATIENT
  Age: 7 Year
  Sex: Female

DRUGS (5)
  1. PHENOBARBITAL (UNKNOWN) [Suspect]
     Indication: GENERALISED TONIC-CLONIC SEIZURE
     Dosage: 6 MG/KG, DAILY
     Route: 065
  2. PRIMIDONE (WATSON LABORATORIES) [Suspect]
     Indication: PRODUCT USED FOR UNKNOWN INDICATION
     Dosage: UNKNOWN
     Route: 065
  3. VALPROIC ACID (UNKNOWN) [Interacting]
     Indication: GENERALISED TONIC-CLONIC SEIZURE
     Dosage: 55 MG/KG, DAILY
     Route: 065
  4. LORAZEPAM [Concomitant]
     Indication: GENERALISED TONIC-CLONIC SEIZURE
     Dosage: AS NEEDED
     Route: 065
  5. GABAPENTIN [Concomitant]
     Indication: NEURALGIA
     Dosage: 100 MG, TID
     Route: 065

REACTIONS (4)
  - Coma [Recovering/Resolving]
  - Ammonia increased [Unknown]
  - Drug interaction [Recovering/Resolving]
  - Overdose [Recovering/Resolving]
